FAERS Safety Report 15855262 (Version 2)
Quarter: 2019Q1

REPORT INFORMATION
  Report Type: Spontaneous
  Country: DE (occurrence: DE)
  Receive Date: 20190122
  Receipt Date: 20190216
  Transmission Date: 20190417
  Serious: Yes (Hospitalization, Other)
  Sender: FDA-Public Use
  Company Number: PHHY2019DE009621

PATIENT
  Age: 84 Year
  Sex: Male

DRUGS (4)
  1. BICALUTAMID 1A PHARMA [Suspect]
     Active Substance: BICALUTAMIDE
     Dosage: 100 MG, QD (FOR ONE WEEK)
     Route: 065
  2. BICALUTAMID 1A PHARMA [Suspect]
     Active Substance: BICALUTAMIDE
     Dosage: 150 MG, QD (FOR ONE WEEK)
     Route: 065
     Dates: end: 201812
  3. BICALUTAMID 1A PHARMA [Suspect]
     Active Substance: BICALUTAMIDE
     Indication: PROSTATE CANCER
     Dosage: 50 MG, QD (FOR 10 DAYS)
     Route: 065
     Dates: start: 20181216
  4. PLAVIX [Concomitant]
     Active Substance: CLOPIDOGREL BISULFATE
     Indication: PRODUCT USED FOR UNKNOWN INDICATION
     Dosage: UNK
     Route: 065

REACTIONS (13)
  - Face oedema [Unknown]
  - Periorbital swelling [Recovering/Resolving]
  - Body temperature increased [Recovering/Resolving]
  - Renal disorder [Recovering/Resolving]
  - Dysuria [Recovering/Resolving]
  - Rash generalised [Recovering/Resolving]
  - Pharyngeal erythema [Unknown]
  - Hypertension [Recovering/Resolving]
  - Concomitant disease aggravated [Recovering/Resolving]
  - Dyspnoea [Unknown]
  - Enlarged uvula [Unknown]
  - Anaemia [Recovering/Resolving]
  - Peripheral swelling [Recovering/Resolving]
